FAERS Safety Report 8683119 (Version 3)
Quarter: 2012Q4

REPORT INFORMATION
  Report Type: Report from Study
  Country: US (occurrence: US)
  Receive Date: 20120725
  Receipt Date: 20121004
  Transmission Date: 20130627
  Serious: Yes (Hospitalization)
  Sender: FDA-Public Use
  Company Number: US-ABBOTT-12P-163-0958991-00

PATIENT
  Sex: Female
  Weight: 97.61 kg

DRUGS (1)
  1. LUPRON DEPOT 3.75 MG [Suspect]
     Indication: UTERINE LEIOMYOMA
     Route: 030
     Dates: start: 20120327

REACTIONS (1)
  - Hospitalisation [Unknown]
